FAERS Safety Report 4378006-0 (Version None)
Quarter: 2004Q2

REPORT INFORMATION
  Report Type: 
  Country: None (occurrence: None)
  Receive Date: 20040616
  Receipt Date: 20040602
  Transmission Date: 20050107
  Serious: Yes (Hospitalization)
  Sender: FDA-Public Use
  Company Number: US-JNJFOC-20040205306

PATIENT
  Sex: Female

DRUGS (4)
  1. REGRANEX [Suspect]
     Route: 061
  2. CHEMOTHERAPY [Concomitant]
  3. NARCOTIC ANALGESICS [Concomitant]
  4. MYCELEX TROCHES [Concomitant]

REACTIONS (3)
  - BURNING SENSATION [None]
  - CATHETER RELATED COMPLICATION [None]
  - MEDICAL DEVICE DISCOMFORT [None]
